FAERS Safety Report 9379995 (Version 2)
Quarter: 2013Q3

REPORT INFORMATION
  Report Type: Spontaneous
  Country: US (occurrence: None)
  Receive Date: 20130627
  Receipt Date: 20130806
  Transmission Date: 20140515
  Serious: Yes (Hospitalization)
  Sender: FDA-Public Use
  Company Number: 2013P1009642

PATIENT
  Age: 48 Year
  Sex: Male

DRUGS (2)
  1. INFUMORPH [Suspect]
     Indication: PAIN
     Route: 037
  2. INFUMORPH [Suspect]
     Indication: PROCEDURAL PAIN
     Route: 037

REACTIONS (33)
  - Withdrawal syndrome [None]
  - Malaise [None]
  - Influenza like illness [None]
  - Back pain [None]
  - Headache [None]
  - Neck pain [None]
  - Sinus headache [None]
  - Dysgeusia [None]
  - Parosmia [None]
  - Device ineffective [None]
  - Paraesthesia [None]
  - Device power source issue [None]
  - Device failure [None]
  - Cerebrospinal fluid leakage [None]
  - Refusal of treatment by patient [None]
  - Emotional disorder [None]
  - Back pain [None]
  - Pain [None]
  - Hypoaesthesia [None]
  - Spinal osteoarthritis [None]
  - Spinal compression fracture [None]
  - Sleep disorder [None]
  - Insomnia [None]
  - Inadequate analgesia [None]
  - Fatigue [None]
  - Nerve degeneration [None]
  - Constipation [None]
  - Post laminectomy syndrome [None]
  - Pain [None]
  - Dysgeusia [None]
  - Skin discolouration [None]
  - Paraesthesia [None]
  - Muscular weakness [None]
